FAERS Safety Report 17521236 (Version 1)
Quarter: 2020Q1

REPORT INFORMATION
  Report Type: Report from Study
  Country: US (occurrence: US)
  Receive Date: 20200310
  Receipt Date: 20200310
  Transmission Date: 20200409
  Serious: Yes (Death)
  Sender: FDA-Public Use
  Company Number: US-MYLANLABS-2020M1025984

PATIENT

DRUGS (9)
  1. DOXORUBICIN [Suspect]
     Active Substance: DOXORUBICIN
     Indication: HODGKIN^S DISEASE
     Dosage: ABVD REGIMEN; ADMINISTERED FOR 2 CYCLES AND EBEACOPP REGIMEN, SCHEDULED FOR 6 CYCLES
     Route: 065
  2. PROCARBAZINE [Suspect]
     Active Substance: PROCARBAZINE
     Indication: HODGKIN^S DISEASE
     Dosage: EBEACOPP REGIMEN; SCHEDULED TO BE ADMINISTERED FOR 6 CYCLES
     Route: 065
  3. VINBLASTINE [Concomitant]
     Active Substance: VINBLASTINE
     Indication: HODGKIN^S DISEASE
     Dosage: ABVD REGIMEN; ADMINISTERED FOR 2 CYCLES
     Route: 065
  4. ETOPOSIDE. [Suspect]
     Active Substance: ETOPOSIDE
     Indication: HODGKIN^S DISEASE
     Dosage: EBEACOPP REGIMEN; SCHEDULED TO BE ADMINISTERED FOR 6 CYCLES
     Route: 065
  5. CYCLOPHOSPHAMIDE. [Suspect]
     Active Substance: CYCLOPHOSPHAMIDE
     Indication: HODGKIN^S DISEASE
     Dosage: EBEACOPP REGIMEN; SCHEDULED TO BE ADMINISTERED FOR 6 CYCLES
     Route: 065
  6. VINCRISTINE [Suspect]
     Active Substance: VINCRISTINE
     Indication: HODGKIN^S DISEASE
     Dosage: EBEACOPP REGIMEN; SCHEDULED TO BE ADMINISTERED FOR 6 CYCLES
     Route: 065
  7. DACARBAZINE. [Concomitant]
     Active Substance: DACARBAZINE
     Indication: HODGKIN^S DISEASE
     Dosage: ABVD REGIMEN; ADMINISTERED FOR 2 CYCLES
     Route: 065
  8. BLEOMYCIN [Suspect]
     Active Substance: BLEOMYCIN SULFATE
     Indication: HODGKIN^S DISEASE
     Dosage: ABVD REGIMEN; ADMINISTERED FOR 2 CYCLES AND EBEACOPP REGIMEN, SCHEDULED FOR 6 CYCLES
     Route: 065
  9. PREDNISONE. [Suspect]
     Active Substance: PREDNISONE
     Indication: HODGKIN^S DISEASE
     Dosage: EBEACOPP REGIMEN; SCHEDULED TO BE ADMINISTERED FOR 6 CYCLES
     Route: 065

REACTIONS (1)
  - Sepsis [Fatal]
